FAERS Safety Report 7462236 (Version 19)
Quarter: 2019Q1

REPORT INFORMATION
  Report Type: Spontaneous
  Country: CA (occurrence: CA)
  Receive Date: 20100709
  Receipt Date: 20190101
  Transmission Date: 20190418
  Serious: Yes (Hospitalization, Other)
  Sender: FDA-Public Use
  Company Number: CA-ROCHE-GNE303759

PATIENT
  Age: 60 Year
  Sex: Female

DRUGS (12)
  1. XOLAIR [Suspect]
     Active Substance: OMALIZUMAB
     Route: 058
     Dates: start: 20181204
  2. XOLAIR [Suspect]
     Active Substance: OMALIZUMAB
     Route: 058
     Dates: start: 20170113
  3. XOLAIR [Suspect]
     Active Substance: OMALIZUMAB
     Route: 058
     Dates: start: 20170220
  4. XOLAIR [Suspect]
     Active Substance: OMALIZUMAB
     Route: 058
     Dates: start: 20170425
  5. XOLAIR [Suspect]
     Active Substance: OMALIZUMAB
     Route: 058
     Dates: start: 20180102
  6. XOLAIR [Suspect]
     Active Substance: OMALIZUMAB
     Indication: ASTHMA
     Route: 058
     Dates: start: 20090421
  7. XOLAIR [Suspect]
     Active Substance: OMALIZUMAB
     Route: 058
     Dates: start: 20181224
  8. SOLU-CORTEF [Suspect]
     Active Substance: HYDROCORTISONE SODIUM SUCCINATE
     Indication: ADRENAL INSUFFICIENCY
     Route: 065
     Dates: start: 201703
  9. MORPHINE [Suspect]
     Active Substance: MORPHINE
     Indication: PRODUCT USED FOR UNKNOWN INDICATION
     Route: 065
  10. XOLAIR [Suspect]
     Active Substance: OMALIZUMAB
     Route: 058
     Dates: start: 20160729
  11. XOLAIR [Suspect]
     Active Substance: OMALIZUMAB
     Route: 058
     Dates: start: 20160408
  12. XOLAIR [Suspect]
     Active Substance: OMALIZUMAB
     Route: 058
     Dates: start: 20170213

REACTIONS (24)
  - Oxygen saturation decreased [Recovering/Resolving]
  - Adrenal insufficiency [Unknown]
  - Basophil count increased [Unknown]
  - Seasonal allergy [Unknown]
  - Cough [Recovering/Resolving]
  - Tremor [Unknown]
  - Cellulitis [Unknown]
  - Sinusitis [Recovered/Resolved]
  - Abdominal pain [Unknown]
  - Pneumonia [Unknown]
  - Thyroid disorder [Unknown]
  - Epiglottitis [Unknown]
  - Ovarian cyst [Unknown]
  - Weight decreased [Unknown]
  - White blood cell count decreased [Unknown]
  - Sepsis [Unknown]
  - Pain [Unknown]
  - Parkinson^s disease [Unknown]
  - Productive cough [Unknown]
  - Dyspnoea [Recovering/Resolving]
  - Inappropriate schedule of product administration [Unknown]
  - Bronchitis [Recovered/Resolved]
  - Weight increased [Unknown]
  - Lung disorder [Unknown]

NARRATIVE: CASE EVENT DATE: 201203
